FAERS Safety Report 22093137 (Version 1)
Quarter: 2023Q1

REPORT INFORMATION
  Report Type: Spontaneous
  Country: GB (occurrence: GB)
  Receive Date: 20230314
  Receipt Date: 20230314
  Transmission Date: 20230418
  Serious: Yes (Hospitalization, Other)
  Sender: FDA-Public Use
  Company Number: None

PATIENT

DRUGS (9)
  1. IBUPROFEN [Suspect]
     Active Substance: IBUPROFEN
     Indication: Back pain
     Dosage: WITH FOOD
     Route: 065
  2. BECLOMETHASONE\FORMOTEROL [Concomitant]
     Active Substance: BECLOMETHASONE\FORMOTEROL
     Dosage: 100MICROGRAMS/DOSE/6MICROGRAMS/DOSE.PUFFS VIA SPACER.
     Route: 055
  3. BUPRENORPHINE [Concomitant]
     Active Substance: BUPRENORPHINE
     Dosage: 5MICROGRAMS/HOURAS DIRECTED. TWO PATCHES.
     Route: 062
  4. DOCUSATE [Concomitant]
     Active Substance: DOCUSATE
     Indication: Constipation
  5. LACTULOSE [Concomitant]
     Active Substance: LACTULOSE
     Dosage: 3.1-3.7G/5MLTHREE 5ML SPOONFULS
     Route: 048
  6. LANSOPRAZOLE [Concomitant]
     Active Substance: LANSOPRAZOLE
     Dosage: IF TAKES IBUPROFEN
  7. ALBUTEROL [Concomitant]
     Active Substance: ALBUTEROL
     Dosage: ONE OR TWO PUFFS UP TO FOUR TIMES A DAY
     Route: 055
  8. SENNA [Concomitant]
     Active Substance: SENNA LEAF\SENNOSIDES\SENNOSIDES A AND B
     Indication: Constipation
     Dosage: ONE OR TWO TO BE TAKEN AT NIGHT
  9. SPIRIVA [Concomitant]
     Active Substance: TIOTROPIUM BROMIDE MONOHYDRATE
     Dosage: WITH DEVICE
     Route: 055

REACTIONS (2)
  - Transient ischaemic attack [Unknown]
  - Muscular weakness [Unknown]
